FAERS Safety Report 8819360 (Version 1)
Quarter: 2012Q4

REPORT INFORMATION
  Report Type: Spontaneous
  Country: FR (occurrence: None)
  Receive Date: 20121003
  Receipt Date: 20121003
  Transmission Date: 20130627
  Serious: Yes (Hospitalization)
  Sender: FDA-Public Use
  Company Number: FK201202884

PATIENT
  Age: 77 Year
  Sex: Male

DRUGS (6)
  1. OXALIPLATIN [Suspect]
     Indication: RECTAL CANCER
     Dosage: (not otherwise specified)
     Route: 042
     Dates: start: 20120703, end: 20120703
  2. FLUOROURACIL [Suspect]
     Dosage: (not otherwise specified)
     Route: 042
     Dates: start: 20120703, end: 20120703
  3. PREVISCAN [Suspect]
     Route: 048
     Dates: start: 20120703, end: 20120703
  4. LEUCOVORINE (CALCIUM FOLINATE) [Concomitant]
  5. IRINOTECAN (IRINOTECAN) [Concomitant]
  6. COUMADIN (WARFARIN SODIUM) [Concomitant]

REACTIONS (5)
  - Renal failure acute [None]
  - Diarrhoea [None]
  - Eosinophilia [None]
  - Dehydration [None]
  - Toxicity to various agents [None]
